FAERS Safety Report 9641185 (Version 1)
Quarter: 2013Q4

REPORT INFORMATION
  Report Type: Spontaneous
  Country: US (occurrence: US)
  Receive Date: 20131023
  Receipt Date: 20131023
  Transmission Date: 20140711
  Serious: Yes (Other)
  Sender: FDA-Public Use
  Company Number: US-PFIZER INC-2013300322

PATIENT
  Age: 50 Year
  Sex: Female

DRUGS (2)
  1. PRISTIQ [Suspect]
     Dosage: 50 MG, 1X/DAY
  2. PRISTIQ [Suspect]
     Dosage: 100 MG, 1X/DAY

REACTIONS (2)
  - Intentional drug misuse [Unknown]
  - Suicidal ideation [Unknown]
